FAERS Safety Report 17899039 (Version 1)
Quarter: 2020Q2

REPORT INFORMATION
  Report Type: Spontaneous
  Country: DE (occurrence: DE)
  Receive Date: 20200615
  Receipt Date: 20200615
  Transmission Date: 20200714
  Serious: Yes (Congenital Anomaly, Other)
  Sender: FDA-Public Use
  Company Number: DE-TEVA-2020-DE-1247596

PATIENT
  Age: 1 Day
  Sex: Male
  Weight: 3.58 kg

DRUGS (4)
  1. FOLIO FORTE [Concomitant]
     Active Substance: FOLIC ACID\VITAMINS
     Indication: PROPHYLAXIS OF NEURAL TUBE DEFECT
     Dosage: .8 MILLIGRAM DAILY;
     Route: 064
     Dates: start: 20181227, end: 20190311
  2. VENLAFAXINE [Suspect]
     Active Substance: VENLAFAXINE HYDROCHLORIDE
     Indication: ANXIETY DISORDER
     Dosage: 150 [MG / D (UP TO 37.5)] / 150 MG / D UNTIL GW 14, THEN SLOW REDUCTION UNTIL DELIVERY: 37.5 MG / D
     Route: 064
     Dates: start: 20181123, end: 20190808
  3. VOMEX A [Concomitant]
     Active Substance: DIMENHYDRINATE
     Indication: MORNING SICKNESS
     Dosage: 120 MILLIGRAM DAILY; DIFFERING DATES: START AT GW 9 OR 12.
     Route: 064
  4. CETIRIZINE [Concomitant]
     Active Substance: CETIRIZINE HYDROCHLORIDE
     Indication: SEASONAL ALLERGY
     Dosage: 10 MILLIGRAM DAILY; (IF NECESSARY) / ONLY, IF NEEDED
     Route: 064

REACTIONS (6)
  - Foetal exposure during pregnancy [Unknown]
  - Premature baby [Recovered/Resolved]
  - Patent ductus arteriosus [Recovered/Resolved with Sequelae]
  - Pulmonary arterial hypertension [Recovered/Resolved]
  - Anomalous pulmonary venous connection [Recovered/Resolved with Sequelae]
  - Atrial septal defect [Recovered/Resolved with Sequelae]

NARRATIVE: CASE EVENT DATE: 20190808
